FAERS Safety Report 6300997-9 (Version None)
Quarter: 2009Q3

REPORT INFORMATION
  Report Type: 
  Country: None (occurrence: None)
  Receive Date: 20090806
  Receipt Date: 20090806
  Transmission Date: 20100115
  Serious: Yes (Life-Threatening, Other)
  Sender: FDA-Public Use
  Company Number: None

PATIENT
  Age: 77 Year
  Sex: Male
  Weight: 104.5 kg

DRUGS (1)
  1. ADVAIR 250 / 50 TWICE DAILY GLAXO-SMITH-KLINE [Suspect]
     Indication: CHRONIC OBSTRUCTIVE PULMONARY DISEASE
     Dosage: 250/50  TWICE DAILY
     Dates: start: 20090417, end: 20090728

REACTIONS (2)
  - MUSCLE SPASMS [None]
  - TACHYCARDIA [None]
